FAERS Safety Report 8758273 (Version 1)
Quarter: 2012Q4

REPORT INFORMATION
  Report Type: Report from Study
  Country: US (occurrence: US)
  Receive Date: 20120829
  Receipt Date: 20120829
  Transmission Date: 20130627
  Serious: Yes (Other)
  Sender: FDA-Public Use
  Company Number: US-ASTELLAS-2012US007264

PATIENT
  Age: 55 None
  Sex: Male
  Weight: 88 kg

DRUGS (3)
  1. ERLOTINIB TABLET [Suspect]
     Indication: NON-SMALL CELL LUNG CANCER
     Dosage: 150 mg, qod (75 mg daily)
     Route: 048
     Dates: start: 20111017, end: 20120507
  2. ERLOTINIB TABLET [Suspect]
     Dosage: 75 mg, UID/QD
     Route: 048
     Dates: start: 20120601
  3. STEROID DROPS [Concomitant]
     Indication: PRODUCT USED FOR UNKNOWN INDICATION
     Dosage: UNK
     Route: 065

REACTIONS (10)
  - Inappropriate schedule of drug administration [Unknown]
  - Eye swelling [Recovering/Resolving]
  - Eye swelling [Not Recovered/Not Resolved]
  - Eye infection [Recovered/Resolved]
  - Eye pruritus [Not Recovered/Not Resolved]
  - Sunburn [Not Recovered/Not Resolved]
  - Rash [Recovering/Resolving]
  - Rash [Not Recovered/Not Resolved]
  - Rash [Recovering/Resolving]
  - Photosensitivity reaction [Unknown]
